FAERS Safety Report 7524674-1 (Version None)
Quarter: 2011Q2

REPORT INFORMATION
  Report Type: 
  Country: None (occurrence: None)
  Receive Date: 20110601
  Receipt Date: 20110601
  Transmission Date: 20111010
  Serious: Yes (Hospitalization)
  Sender: FDA-Public Use
  Company Number: None

PATIENT
  Sex: Male
  Weight: 68.5 kg

DRUGS (16)
  1. DIGOXIN [Concomitant]
  2. PREDNISONE [Concomitant]
  3. IMDUR [Concomitant]
  4. PRAVASTATIN [Concomitant]
  5. WARFARIN SODIUM [Suspect]
     Indication: ATRIAL FIBRILLATION
     Dosage: 3 MG DAILY ORALLY GREATER THAN 1 YR
     Route: 048
  6. PRECOSE [Concomitant]
  7. POTASSIUM CHLORIDE [Concomitant]
  8. PROSCAR [Concomitant]
  9. MULTIPLE VITAMIN [Concomitant]
  10. FOLIC ACID [Concomitant]
  11. ENOXAPARIN [Suspect]
     Indication: ATRIAL FIBRILLATION
     Dosage: 60 MG TWICE DAILY SUBCUTANEOUSLY
     Route: 058
     Dates: start: 20100424, end: 20100430
  12. METOPROLAL [Concomitant]
  13. NEXIUM [Concomitant]
  14. FOSAMAX [Concomitant]
  15. AUGMENTIN '125' [Concomitant]
  16. FUROSEMIDE [Concomitant]

REACTIONS (4)
  - HAEMATOMA [None]
  - TOOTH ABSCESS [None]
  - CELLULITIS [None]
  - ERYTHEMA [None]
